FAERS Safety Report 12213052 (Version 2)
Quarter: 2016Q4

REPORT INFORMATION
  Report Type: Report from Study
  Country: CA (occurrence: CA)
  Receive Date: 20160328
  Receipt Date: 20161006
  Transmission Date: 20170207
  Serious: Yes (Hospitalization, Other)
  Sender: FDA-Public Use
  Company Number: CA-AMGEN-CANSL2016035676

PATIENT
  Age: 73 Year
  Sex: Female
  Weight: 46 kg

DRUGS (8)
  1. VITAMIN D [Concomitant]
     Active Substance: CHOLECALCIFEROL
     Indication: NUTRITIONAL SUPPLEMENTATION
     Dosage: 10000 IU, QWK
     Route: 048
     Dates: start: 2011
  2. BUTRANS [Concomitant]
     Active Substance: BUPRENORPHINE
     Indication: PAIN
     Dosage: 5 MG, QWK
     Route: 065
     Dates: start: 20160617
  3. SOTALOL. [Concomitant]
     Active Substance: SOTALOL
     Indication: ARRHYTHMIA
     Dosage: 40 MG, BID
     Route: 048
     Dates: start: 201406
  4. PROLIA [Suspect]
     Active Substance: DENOSUMAB
     Dosage: UNK
     Route: 058
     Dates: start: 20160401
  5. PROLIA [Suspect]
     Active Substance: DENOSUMAB
     Indication: OSTEOPOROSIS
     Dosage: 60 MG, Q6MO
     Route: 058
     Dates: start: 20140321
  6. CALCIUM [Concomitant]
     Active Substance: CALCIUM
     Dosage: UNK
     Route: 065
  7. PROLIA [Suspect]
     Active Substance: DENOSUMAB
     Dosage: UNK
     Route: 058
     Dates: start: 20150909
  8. DEXILANT [Concomitant]
     Active Substance: DEXLANSOPRAZOLE
     Indication: GASTROOESOPHAGEAL REFLUX DISEASE
     Dosage: 60 UNK, BID
     Route: 048
     Dates: start: 201406

REACTIONS (7)
  - Cardiac disorder [Unknown]
  - Hernia repair [Unknown]
  - Glaucoma [Not Recovered/Not Resolved]
  - Hernia [Unknown]
  - Atrial fibrillation [Unknown]
  - Fall [Unknown]
  - Arthropathy [Unknown]

NARRATIVE: CASE EVENT DATE: 201508
